FAERS Safety Report 9121429 (Version 1)
Quarter: 2013Q1

REPORT INFORMATION
  Report Type: Spontaneous
  Country: US (occurrence: US)
  Receive Date: 20130225
  Receipt Date: 20130225
  Transmission Date: 20140127
  Serious: No
  Sender: FDA-Public Use
  Company Number: US-BAYER-2013-023479

PATIENT
  Sex: Female

DRUGS (6)
  1. BETASERON [Suspect]
     Indication: MULTIPLE SCLEROSIS
     Dosage: UNK
     Route: 058
     Dates: start: 2003, end: 2004
  2. ADVIL [Concomitant]
  3. AVONEX [Concomitant]
  4. CALCIUM +VIT D [Concomitant]
  5. LYRICA [Concomitant]
  6. MULTIVITAMIN [Concomitant]

REACTIONS (1)
  - Hepatic enzyme increased [Recovered/Resolved]
